FAERS Safety Report 19937993 (Version 3)
Quarter: 2021Q4

REPORT INFORMATION
  Report Type: Spontaneous
  Country: US (occurrence: US)
  Receive Date: 20211011
  Receipt Date: 20211217
  Transmission Date: 20220303
  Serious: No
  Sender: FDA-Public Use
  Company Number: US-ORGANON-O2110USA000283

PATIENT
  Sex: Female

DRUGS (1)
  1. NEXPLANON [Suspect]
     Active Substance: ETONOGESTREL
     Dosage: 1 IMPLANT ONCE (STRENGTH 68 MILLIGRAM) AT LEFT BACK SIDE OF ARM
     Route: 059
     Dates: start: 202106, end: 20210930

REACTIONS (5)
  - Menstruation irregular [Recovering/Resolving]
  - Heavy menstrual bleeding [Unknown]
  - Pain [Unknown]
  - Device placement issue [Recovered/Resolved]
  - Complication of device removal [Recovered/Resolved]

NARRATIVE: CASE EVENT DATE: 20210101
